FAERS Safety Report 10771621 (Version 3)
Quarter: 2015Q1

REPORT INFORMATION
  Report Type: Spontaneous
  Country: NO (occurrence: NO)
  Receive Date: 20150206
  Receipt Date: 20150224
  Transmission Date: 20150721
  Serious: Yes (Other)
  Sender: FDA-Public Use
  Company Number: ALCN2015NO000947

PATIENT
  Age: 23 Year
  Sex: Male

DRUGS (12)
  1. ASPARAGINASE [Concomitant]
     Active Substance: ASPARAGINASE
     Dosage: UNK
  2. CARMUSTINE [Concomitant]
     Active Substance: CARMUSTINE
     Dosage: UNK
  3. CYCLOPHOSPHAMIDE. [Concomitant]
     Active Substance: CYCLOPHOSPHAMIDE
     Dosage: UNK
  4. DAUNORUBICIN [Concomitant]
     Active Substance: DAUNORUBICIN
     Dosage: UNK
  5. LANVIS [Concomitant]
     Active Substance: THIOGUANINE ANHYDROUS
     Dosage: UNK
  6. VINCRISTINE [Concomitant]
     Active Substance: VINCRISTINE
     Dosage: UNK
  7. DEXAMETHASONE. [Suspect]
     Active Substance: DEXAMETHASONE
     Dosage: UNK
     Route: 047
  8. METHOTREXATE [Concomitant]
     Active Substance: METHOTREXATE
     Dosage: UNK
  9. DOXORUBICIN [Concomitant]
     Active Substance: DOXORUBICIN
     Dosage: UNK
  10. PREDNISOLON [Concomitant]
     Active Substance: PREDNISOLONE
     Dosage: UNK
  11. MERCAPTOPURINA [Concomitant]
     Dosage: UNK
  12. CYTARABINE. [Concomitant]
     Active Substance: CYTARABINE
     Dosage: UNK

REACTIONS (3)
  - Osteonecrosis [Not Recovered/Not Resolved]
  - Hip deformity [Unknown]
  - Deafness [Not Recovered/Not Resolved]
